FAERS Safety Report 10394387 (Version 1)
Quarter: 2014Q3

REPORT INFORMATION
  Report Type: Spontaneous
  Country: US (occurrence: US)
  Receive Date: 20140819
  Receipt Date: 20140819
  Transmission Date: 20150326
  Serious: Yes (Hospitalization, Other)
  Sender: FDA-Public Use
  Company Number: US-009507513-1408USA010755

PATIENT
  Sex: Female

DRUGS (2)
  1. NUVARING [Suspect]
     Active Substance: ETHINYL ESTRADIOL\ETONOGESTREL
     Indication: PRODUCT USED FOR UNKNOWN INDICATION
     Dosage: UNK
     Route: 067
  2. DEPO-PROVERA [Suspect]
     Active Substance: MEDROXYPROGESTERONE ACETATE
     Indication: PRODUCT USED FOR UNKNOWN INDICATION

REACTIONS (10)
  - Depression [Unknown]
  - Ovarian cyst [Unknown]
  - Cerebrovascular accident [Not Recovered/Not Resolved]
  - Dysfunctional uterine bleeding [Unknown]
  - Bronchospasm [Unknown]
  - Embolism venous [Unknown]
  - Coagulopathy [Unknown]
  - Transient ischaemic attack [Unknown]
  - Gestational diabetes [Unknown]
  - Uterine dilation and curettage [Unknown]

NARRATIVE: CASE EVENT DATE: 200812
